FAERS Safety Report 5334362-8 (Version None)
Quarter: 2007Q2

REPORT INFORMATION
  Report Type: 
  Country: None (occurrence: None)
  Receive Date: 20070525
  Receipt Date: 20070329
  Transmission Date: 20071010
  Serious: No
  Sender: FDA-Public Use
  Company Number: US-BRISTOL-MYERS SQUIBB COMPANY-13732458

PATIENT
  Age: 69 Year
  Sex: Male
  Weight: 73 kg

DRUGS (2)
  1. CYTOXAN [Suspect]
     Indication: POLYARTERITIS NODOSA
     Dates: start: 20060101
  2. PREDNISONE TAB [Concomitant]

REACTIONS (1)
  - HAIR COLOUR CHANGES [None]
